FAERS Safety Report 11083665 (Version 1)
Quarter: 2015Q2

REPORT INFORMATION
  Report Type: Spontaneous
  Country: US (occurrence: US)
  Receive Date: 20150501
  Receipt Date: 20150501
  Transmission Date: 20150821
  Serious: Yes (Other)
  Sender: FDA-Public Use
  Company Number: US-BAYER-2015-164318

PATIENT
  Age: 66 Year
  Sex: Male

DRUGS (5)
  1. ACETYLSALICYLIC ACID({=100 MG) [Interacting]
     Active Substance: ASPIRIN
  2. MILRINONE [Concomitant]
     Active Substance: MILRINONE
     Route: 042
  3. AMIODARONE [Suspect]
     Active Substance: AMIODARONE
     Indication: VENTRICULAR ARRHYTHMIA
  4. TORSEMIDE. [Concomitant]
     Active Substance: TORSEMIDE
  5. WARFARIN [Interacting]
     Active Substance: WARFARIN

REACTIONS (4)
  - Respiratory failure [Recovering/Resolving]
  - Pulmonary alveolar haemorrhage [Recovering/Resolving]
  - Labelled drug-drug interaction medication error [None]
  - Cardiopulmonary failure [Recovering/Resolving]
